FAERS Safety Report 7156201-5 (Version None)
Quarter: 2010Q4

REPORT INFORMATION
  Report Type: 
  Country: None (occurrence: None)
  Receive Date: 20101123
  Receipt Date: 20100927
  Transmission Date: 20110411
  Serious: Yes (Other)
  Sender: FDA-Public Use
  Company Number: 018115

PATIENT
  Sex: Male
  Weight: 102.1 kg

DRUGS (7)
  1. CIMZIA [Suspect]
     Indication: RHEUMATOID ARTHRITIS
     Dosage: 400 MG 1X/2 WEEKS SUBCUTANEOUS
     Route: 058
     Dates: start: 20100727, end: 20100824
  2. ENTOCORT EC [Concomitant]
  3. PREDNISONE [Concomitant]
  4. MICARDIS [Concomitant]
  5. LEVOTHYROXINE [Concomitant]
  6. NEBIVOLOL [Concomitant]
  7. SIMVASTATIN [Concomitant]

REACTIONS (12)
  - BLOOD GLUCOSE INCREASED [None]
  - CARDIAC FAILURE CONGESTIVE [None]
  - DIZZINESS [None]
  - DYSPNOEA [None]
  - HEADACHE [None]
  - HYPOAESTHESIA [None]
  - MUSCULAR WEAKNESS [None]
  - MUSCULOSKELETAL STIFFNESS [None]
  - OEDEMA PERIPHERAL [None]
  - PAIN [None]
  - PARAESTHESIA [None]
  - SKIN HYPERTROPHY [None]
